FAERS Safety Report 7972744-6 (Version None)
Quarter: 2011Q4

REPORT INFORMATION
  Report Type: 
  Country: None (occurrence: None)
  Receive Date: 20111213
  Receipt Date: 20111128
  Transmission Date: 20120403
  Serious: Yes (Death, Hospitalization, Other)
  Sender: FDA-Public Use
  Company Number: JP-ROCHE-1001817

PATIENT
  Sex: Female
  Weight: 55 kg

DRUGS (24)
  1. OXALIPLATIN [Suspect]
     Dosage: UNCERTAIN DOSAGE AND SEVERAL COURSES
     Route: 041
     Dates: start: 20110826, end: 20110826
  2. FAMOTIDINE [Concomitant]
     Dosage: UNCERTAIN DOSAGE AND SEVERAL COURSES
     Route: 041
     Dates: start: 20110729, end: 20110729
  3. POLARAMINE [Concomitant]
     Dosage: UNCERTAIN DOSAGE AND SEVERAL COURSES
     Route: 041
     Dates: start: 20110826, end: 20110826
  4. XELODA [Suspect]
     Dosage: UNCERTAIN DOSAGE AND SEVERAL COURSES
     Route: 048
     Dates: start: 20110729, end: 20110805
  5. ZOMETA [Concomitant]
     Dosage: UNCERTAIN DOSAGE AND SEVERAL COURSES
     Route: 041
     Dates: start: 20110708, end: 20110708
  6. ZOMETA [Concomitant]
     Dosage: UNCERTAIN DOSAGE AND SEVERAL COURSES
     Route: 041
     Dates: start: 20110729, end: 20110729
  7. DEXAMETHASONE SODIUM PHOSPHATE [Concomitant]
     Dosage: UNCERTAIN DOSAGE AND SEVERAL COURSES
     Route: 041
     Dates: start: 20110708, end: 20110708
  8. FAMOTIDINE [Concomitant]
     Dosage: UNCERTAIN DOSAGE AND SEVERAL COURSES
     Route: 041
     Dates: start: 20110826, end: 20110826
  9. CALBLOCK [Concomitant]
     Route: 048
     Dates: start: 20101203
  10. ALOXI [Concomitant]
     Dosage: UNCERTAIN DOSAGE AND SEVERAL COURSES
     Route: 041
     Dates: start: 20110826, end: 20110826
  11. OXALIPLATIN [Suspect]
     Dosage: UNCERTAIN DOSAGE AND SEVERAL COURSES
     Route: 041
     Dates: start: 20110729, end: 20110729
  12. ZOMETA [Concomitant]
     Dosage: UNCERTAIN DOSAGE AND SEVERAL COURSES
     Route: 041
     Dates: start: 20110826, end: 20110826
  13. GRANISETRON [Concomitant]
     Dosage: UNCERTAIN DOSAGE AND SEVERAL COURSES
     Route: 041
     Dates: start: 20110729, end: 20110729
  14. POLARAMINE [Concomitant]
     Dosage: UNCERTAIN DOSAGE AND SEVERAL COURSES
     Route: 041
     Dates: start: 20110708, end: 20110708
  15. GLEEVEC [Concomitant]
     Route: 048
     Dates: start: 20051007, end: 20110926
  16. XELODA [Suspect]
     Indication: LARGE INTESTINE CARCINOMA
     Dosage: UNCERTAIN DOSAGE AND SEVERAL COURSES
     Route: 048
     Dates: start: 20110708, end: 20110721
  17. GRANISETRON [Concomitant]
     Dosage: UNCERTAIN DOSAGE AND SEVERAL COURSES
     Route: 041
     Dates: start: 20110708, end: 20110708
  18. DEXAMETHASONE SODIUM PHOSPHATE [Concomitant]
     Dosage: UNCERTAIN DOSAGE AND SEVERAL COURSES
     Route: 041
     Dates: start: 20110729, end: 20110729
  19. FAMOTIDINE [Concomitant]
     Dosage: UNCERTAIN DOSAGE AND SEVERAL COURSES
     Route: 041
     Dates: start: 20110708, end: 20110708
  20. POLARAMINE [Concomitant]
     Dosage: UNCERTAIN DOSAGE AND SEVERAL COURSES
     Route: 041
     Dates: start: 20110729, end: 20110729
  21. XELODA [Suspect]
     Dosage: UNCERTAIN DOSAGE AND SEVERAL COURSES
     Route: 048
     Dates: start: 20110826, end: 20110908
  22. OXALIPLATIN [Suspect]
     Indication: LARGE INTESTINE CARCINOMA
     Dosage: UNCERTAIN DOSAGE AND SEVERAL COURSES
     Route: 041
     Dates: start: 20110708, end: 20110708
  23. DEXAMETHASONE SODIUM PHOSPHATE [Concomitant]
     Dosage: UNCERTAIN DOSAGE AND SEVERAL COURSES
     Route: 041
     Dates: start: 20110826, end: 20110826
  24. RIZE [Concomitant]
     Dosage: FOR TAKING AND TON THAN BEFORE
     Route: 048

REACTIONS (14)
  - INJECTION SITE EXTRAVASATION [None]
  - DEVICE RELATED SEPSIS [None]
  - MOUTH HAEMORRHAGE [None]
  - BLISTER [None]
  - RENAL FAILURE [None]
  - ERYTHEMA [None]
  - RENAL IMPAIRMENT [None]
  - INTERSTITIAL LUNG DISEASE [None]
  - HEPATIC FAILURE [None]
  - ILEUS [None]
  - DIARRHOEA [None]
  - ANAPHYLACTIC REACTION [None]
  - RESTLESSNESS [None]
  - PNEUMOTHORAX [None]
